FAERS Safety Report 7600870-X (Version None)
Quarter: 2011Q3

REPORT INFORMATION
  Report Type: 
  Country: None (occurrence: None)
  Receive Date: 20110711
  Receipt Date: 20110707
  Transmission Date: 20111222
  Serious: Yes (Other)
  Sender: FDA-Public Use
  Company Number: US-ELI_LILLY_AND_COMPANY-US200910004069

PATIENT
  Sex: Female

DRUGS (3)
  1. BYETTA [Suspect]
     Dates: start: 20070701
  2. BYETTA [Suspect]
     Dosage: 5 UG, BID
     Dates: start: 20051001
  3. BYETTA [Suspect]
     Dosage: UNK

REACTIONS (2)
  - RENAL FAILURE CHRONIC [None]
  - PANCREATITIS [None]
